FAERS Safety Report 6558708-8 (Version None)
Quarter: 2010Q1

REPORT INFORMATION
  Report Type: 
  Country: None (occurrence: None)
  Receive Date: 20100129
  Receipt Date: 20100121
  Transmission Date: 20100710
  Serious: Yes (Hospitalization)
  Sender: FDA-Public Use
  Company Number: AU-PFIZER INC-2010008035

PATIENT
  Sex: Female

DRUGS (2)
  1. ESTRADIOL AND NORETHINDRONE [Suspect]
     Dosage: 3 MONTHS
     Dates: end: 20100114
  2. LEVOTHYROXINE SODIUM [Suspect]
     Dosage: 50 UG, 1X/DAY

REACTIONS (3)
  - CHEST PAIN [None]
  - COSTOCHONDRITIS [None]
  - DYSPNOEA [None]
